FAERS Safety Report 23206039 (Version 2)
Quarter: 2024Q1

REPORT INFORMATION
  Report Type: Report from Study
  Country: US (occurrence: US)
  Receive Date: 20231120
  Receipt Date: 20240329
  Transmission Date: 20240410
  Serious: Yes (Hospitalization)
  Sender: FDA-Public Use
  Company Number: US-ABBVIE-5494906

PATIENT
  Sex: Female

DRUGS (4)
  1. RINVOQ [Suspect]
     Active Substance: UPADACITINIB
     Indication: Colitis ulcerative
     Dosage: LAST ADMIN DATE 2023
     Route: 048
     Dates: start: 20230911
  2. RINVOQ [Suspect]
     Active Substance: UPADACITINIB
     Indication: Colitis ulcerative
     Dosage: FORM STRENGTH: 45 MILLIGRAM
     Route: 048
     Dates: start: 202403
  3. RINVOQ [Suspect]
     Active Substance: UPADACITINIB
     Indication: Colitis ulcerative
     Route: 048
     Dates: start: 20231011, end: 202311
  4. RINVOQ [Suspect]
     Active Substance: UPADACITINIB
     Indication: Colitis ulcerative
     Dosage: FIRST ADMIN DATE 2023
     Route: 048
     Dates: end: 202312

REACTIONS (18)
  - Norovirus infection [Unknown]
  - Arthralgia [Unknown]
  - Gastroenteritis viral [Unknown]
  - Sinus congestion [Recovering/Resolving]
  - Joint swelling [Recovering/Resolving]
  - Dyspnoea [Recovering/Resolving]
  - Chest pain [Recovering/Resolving]
  - Anaemia [Unknown]
  - Gastric infection [Unknown]
  - Nasopharyngitis [Recovering/Resolving]
  - Fatigue [Unknown]
  - Defaecation urgency [Unknown]
  - Colitis ulcerative [Unknown]
  - Flatulence [Unknown]
  - Decreased appetite [Unknown]
  - Abdominal distension [Unknown]
  - Insomnia [Unknown]
  - Asthenia [Unknown]

NARRATIVE: CASE EVENT DATE: 20230101
